FAERS Safety Report 4313507-2 (Version None)
Quarter: 2004Q1

REPORT INFORMATION
  Report Type: 
  Country: None (occurrence: None)
  Receive Date: 20040304
  Receipt Date: 20040213
  Transmission Date: 20041129
  Serious: Yes (Hospitalization)
  Sender: FDA-Public Use
  Company Number: USA040259328

PATIENT
  Age: 83 Year
  Sex: Male

DRUGS (2)
  1. HUMULIN 70/30 [Suspect]
     Dates: end: 20020501
  2. HUMALOG [Suspect]
     Dates: start: 20020501

REACTIONS (5)
  - BLOOD GLUCOSE INCREASED [None]
  - LEG AMPUTATION [None]
  - MUSCULOSKELETAL DISORDER [None]
  - SKIN DISCOLOURATION [None]
  - VISUAL ACUITY REDUCED [None]
